FAERS Safety Report 7086392-6 (Version None)
Quarter: 2010Q4

REPORT INFORMATION
  Report Type: 
  Country: None (occurrence: None)
  Receive Date: 20101105
  Receipt Date: 20101026
  Transmission Date: 20110411
  Serious: Yes (Hospitalization)
  Sender: FDA-Public Use
  Company Number: CH-CELGENEUS-151-C5013-10100613

PATIENT
  Sex: Female
  Weight: 90 kg

DRUGS (31)
  1. CC-5013 [Suspect]
     Indication: MULTIPLE MYELOMA
     Route: 048
     Dates: start: 20101004, end: 20101011
  2. DEXAMETHASONE [Suspect]
     Indication: MULTIPLE MYELOMA
     Route: 065
     Dates: start: 20100916, end: 20100919
  3. DEXAMETHASONE [Suspect]
     Route: 065
     Dates: start: 20101004
  4. PANADOL [Concomitant]
     Indication: BACK PAIN
     Route: 048
     Dates: start: 20100913
  5. OXYCONTIN [Concomitant]
     Indication: BACK PAIN
     Route: 048
     Dates: start: 20100913
  6. PANTOPRAZOLE SODIUM [Concomitant]
     Route: 048
     Dates: start: 20100901
  7. PERENTEROL [Concomitant]
     Route: 048
     Dates: start: 20100901
  8. MICARDIS HCT [Concomitant]
     Indication: HYPERTENSION
     Dosage: 80/25 MG
     Route: 048
  9. MICARDIS HCT [Concomitant]
     Indication: CARDIOMYOPATHY
     Route: 048
  10. CONCOR [Concomitant]
     Indication: HYPERTENSION
     Route: 048
     Dates: start: 20100920
  11. CONCOR [Concomitant]
     Indication: CARDIOMYOPATHY
     Route: 048
  12. ALDACTONE [Concomitant]
     Indication: HYPERTENSION
     Route: 048
     Dates: start: 20100920
  13. ALDACTONE [Concomitant]
     Indication: CARDIOMYOPATHY
     Route: 048
  14. AMLODIPINE [Concomitant]
     Indication: HYPERTENSION
     Route: 048
     Dates: start: 20101004, end: 20101007
  15. AMLODIPINE [Concomitant]
     Indication: CARDIOMYOPATHY
     Route: 048
  16. SOLMUCOL [Concomitant]
     Indication: PRODUCTIVE COUGH
     Route: 048
     Dates: start: 20100901, end: 20101007
  17. KONAKION [Concomitant]
     Route: 048
     Dates: start: 20100929, end: 20100929
  18. FRAGMIN [Concomitant]
     Indication: THROMBOSIS PROPHYLAXIS
     Route: 058
     Dates: start: 20100901, end: 20101001
  19. ZOMETA [Concomitant]
     Indication: OSTEOLYSIS
     Route: 051
     Dates: start: 20100915
  20. ASPIRIN [Concomitant]
     Indication: THROMBOSIS PROPHYLAXIS
     Route: 048
     Dates: start: 20101001
  21. RED BLOOD CELLS [Concomitant]
     Dosage: 2 UNITS
     Route: 065
     Dates: start: 20100901, end: 20100901
  22. RED BLOOD CELLS [Concomitant]
     Dosage: 2 UNITS
     Route: 065
     Dates: start: 20101001, end: 20101001
  23. CIPRALEX [Concomitant]
     Route: 065
  24. ATENOLOL [Concomitant]
     Route: 065
  25. HARPAGOMED [Concomitant]
     Indication: PAIN
     Route: 065
  26. PREDNISONE [Concomitant]
     Route: 065
     Dates: start: 20100827
  27. DOMPERIDONE [Concomitant]
     Route: 065
  28. OPTIFEN [Concomitant]
     Route: 065
  29. FLECTOR [Concomitant]
     Route: 062
  30. MOTILIUM [Concomitant]
     Route: 048
  31. IRFEN [Concomitant]
     Route: 065

REACTIONS (8)
  - CARDIAC FAILURE [None]
  - DIVERTICULITIS [None]
  - ESCHERICHIA TEST POSITIVE [None]
  - HAEMOGLOBIN DECREASED [None]
  - ORAL CANDIDIASIS [None]
  - PLATELET COUNT DECREASED [None]
  - SYSTEMIC INFLAMMATORY RESPONSE SYNDROME [None]
  - URINARY TRACT INFECTION [None]
